FAERS Safety Report 8818722 (Version 2)
Quarter: 2015Q2

REPORT INFORMATION
  Report Type: Report from Study
  Country: US (occurrence: US)
  Receive Date: 20121001
  Receipt Date: 20150623
  Transmission Date: 20150821
  Serious: Yes (Death)
  Sender: FDA-Public Use
  Company Number: US-ROCHE-1129774

PATIENT
  Sex: Female
  Weight: 80.8 kg

DRUGS (6)
  1. HEPARIN [Concomitant]
     Active Substance: HEPARIN SODIUM
     Route: 042
  2. NAVELBINE [Concomitant]
     Active Substance: VINORELBINE TARTRATE
     Route: 065
     Dates: start: 199904
  3. ALTACE [Concomitant]
     Active Substance: RAMIPRIL
     Route: 065
  4. HERCEPTIN [Suspect]
     Active Substance: TRASTUZUMAB
     Indication: BREAST CANCER FEMALE
     Route: 042
     Dates: start: 199904, end: 20030725
  5. HERCEPTIN [Suspect]
     Active Substance: TRASTUZUMAB
     Dosage: LOADING DOSE
     Route: 042
  6. GEMZAR [Concomitant]
     Active Substance: GEMCITABINE HYDROCHLORIDE
     Route: 065

REACTIONS (14)
  - Rectal haemorrhage [Unknown]
  - Death [Fatal]
  - Fatigue [Unknown]
  - Diarrhoea [Unknown]
  - Asthenia [Unknown]
  - Hot flush [Unknown]
  - Oedema peripheral [Unknown]
  - Hypertension [Unknown]
  - Headache [Unknown]
  - Leukopenia [Unknown]
  - Hepatic lesion [Unknown]
  - Disease progression [Unknown]
  - Abdominal pain lower [Unknown]
  - Dyspepsia [Unknown]
